FAERS Safety Report 5316498-0 (Version None)
Quarter: 2007Q2

REPORT INFORMATION
  Report Type: 
  Country: None (occurrence: None)
  Receive Date: 20070504
  Receipt Date: 20070425
  Transmission Date: 20071010
  Serious: Yes (Hospitalization, Other)
  Sender: FDA-Public Use
  Company Number: US-KINGPHARMUSA00001-K200700520

PATIENT

DRUGS (6)
  1. ALTACE [Suspect]
     Dosage: 10 MG, QD
     Route: 048
  2. AMARYL [Suspect]
     Dosage: 2 MG, QD
     Route: 048
  3. LASILIX /00032601/ [Suspect]
     Dosage: 60 MG, QD
     Route: 048
  4. TAHOR [Suspect]
     Dosage: 10 MG, QD
     Route: 048
  5. CARDENSIEL [Suspect]
     Dosage: 10 MG, QD
     Route: 048
  6. PREVISCAN  /00789001/ [Suspect]
     Dosage: UNK, UNK
     Route: 048

REACTIONS (2)
  - PRURITUS [None]
  - WEIGHT DECREASED [None]
